FAERS Safety Report 11418682 (Version 2)
Quarter: 2016Q4

REPORT INFORMATION
  Report Type: Spontaneous
  Country: US (occurrence: US)
  Receive Date: 20150826
  Receipt Date: 20161018
  Transmission Date: 20170206
  Serious: Yes (Death, Other)
  Sender: FDA-Public Use
  Company Number: US-TEVA-588788USA

PATIENT
  Age: 35 Year
  Sex: Male

DRUGS (1)
  1. SUBOXONE [Suspect]
     Active Substance: BUPRENORPHINE HYDROCHLORIDE\NALOXONE HYDROCHLORIDE
     Route: 065

REACTIONS (4)
  - Unresponsive to stimuli [Unknown]
  - Toxicity to various agents [Fatal]
  - Drug dependence [Unknown]
  - Head injury [Unknown]

NARRATIVE: CASE EVENT DATE: 20140830
